FAERS Safety Report 7953623-7 (Version None)
Quarter: 2011Q4

REPORT INFORMATION
  Report Type: 
  Country: None (occurrence: None)
  Receive Date: 20111202
  Receipt Date: 20111128
  Transmission Date: 20120403
  Serious: Yes (Other)
  Sender: FDA-Public Use
  Company Number: US-ELI_LILLY_AND_COMPANY-US201106004329

PATIENT
  Sex: Male
  Weight: 115.65 kg

DRUGS (14)
  1. BYETTA [Suspect]
     Indication: DIABETES MELLITUS
     Dosage: 5 UG, UNKNOWN
     Route: 058
     Dates: start: 20080401, end: 20080801
  2. BYETTA [Suspect]
     Dosage: 10 UG, UNKNOWN
     Route: 058
     Dates: start: 20090520, end: 20090625
  3. METFORMIN HCL [Concomitant]
     Indication: DIABETES MELLITUS
     Dosage: 1000 MG, BID
  4. TRICOR [Concomitant]
     Indication: BLOOD CHOLESTEROL
     Dosage: 145 MG, QD
  5. METOPROLOL SUCCINATE [Concomitant]
     Dosage: 100 MG, QD
  6. MELATONIN [Concomitant]
     Dosage: UNK
  7. AMITRIPTYLINE HCL [Concomitant]
     Dosage: 25 MG, QD
  8. HYDROCHLOROTHIAZIDE [Concomitant]
     Dosage: 12.5 MG, UNKNOWN
  9. DILTIAZEM HCL [Concomitant]
     Dosage: 240 MG, QD
  10. NITROGLYCERIN [Concomitant]
     Dosage: 0.4 MG, PRN
     Route: 060
  11. PROSCAR [Concomitant]
     Dosage: 5 MG, QD
  12. NORVASC [Suspect]
     Dosage: 5 MG, QD
  13. FLOMAX [Concomitant]
     Dosage: 0.4 MG, QD
  14. PRAVASTATIN SODIUM [Concomitant]
     Dosage: 40 MG, QD

REACTIONS (3)
  - PANCREATITIS [None]
  - PANCREATITIS ACUTE [None]
  - RENAL DISORDER [None]
